FAERS Safety Report 6306704-8 (Version None)
Quarter: 2009Q3

REPORT INFORMATION
  Report Type: 
  Country: None (occurrence: None)
  Receive Date: 20090812
  Receipt Date: 20090504
  Transmission Date: 20100115
  Serious: No
  Sender: FDA-Public Use
  Company Number: A0783825A

PATIENT
  Sex: Female

DRUGS (1)
  1. VERAMYST [Suspect]
     Route: 045

REACTIONS (4)
  - EPISTAXIS [None]
  - MOOD ALTERED [None]
  - NASAL CONGESTION [None]
  - SINUS DISORDER [None]
